APPROVED DRUG PRODUCT: TREANDA
Active Ingredient: BENDAMUSTINE HYDROCHLORIDE
Strength: 100MG/VIAL
Dosage Form/Route: POWDER;INTRAVENOUS
Application: N022249 | Product #001 | TE Code: AP
Applicant: CEPHALON INC
Approved: Mar 20, 2008 | RLD: Yes | RS: Yes | Type: RX

PATENTS:
Patent 8883836 | Expires: Mar 26, 2029
Patent 9533955 | Expires: Mar 26, 2029
Patent 8791270 | Expires: Jan 12, 2026
Patent 8445524 | Expires: Mar 26, 2029
Patent 9533955 | Expires: Mar 26, 2029
Patent 8669279 | Expires: Mar 26, 2029
Patent 8609863 | Expires: Jan 12, 2026
Patent 8436190 | Expires: Oct 26, 2030
Patent 8895756 | Expires: Jan 12, 2026
Patent 8436190*PED | Expires: Apr 26, 2031
Patent 8445524*PED | Expires: Sep 26, 2029
Patent 8883836*PED | Expires: Sep 26, 2029
Patent 8669279*PED | Expires: Sep 26, 2029
Patent 8791270*PED | Expires: Jul 12, 2026
Patent 8609863*PED | Expires: Jul 12, 2026
Patent 8895756*PED | Expires: Jul 12, 2026
Patent 9533955*PED | Expires: Sep 26, 2029